FAERS Safety Report 4632145-5 (Version None)
Quarter: 2005Q2

REPORT INFORMATION
  Report Type: 
  Country: None (occurrence: None)
  Receive Date: 20050401
  Receipt Date: 20040422
  Transmission Date: 20051028
  Serious: Yes (Hospitalization)
  Sender: FDA-Public Use
  Company Number: 04P-163-0258847-00

PATIENT
  Age: 42 Year
  Sex: Female
  Weight: 121 kg

DRUGS (9)
  1. DEPAKOTE [Suspect]
     Indication: CONVULSION
     Dosage: 1500 MG, 1 IN 1 D; PER ORAL
     Route: 048
     Dates: start: 19900101
  2. PANTOPRAZOLE [Concomitant]
  3. DUCUSATE SODIUM [Concomitant]
  4. CALCITONIN-SALMON [Concomitant]
  5. MULTI-VITAMINS [Concomitant]
  6. TOPIRAMATE [Concomitant]
  7. ASPIRIN [Concomitant]
  8. CITRACAL + D [Concomitant]
  9. LORATADINE [Concomitant]

REACTIONS (1)
  - PANCREATITIS [None]
